FAERS Safety Report 14352464 (Version 5)
Quarter: 2018Q2

REPORT INFORMATION
  Report Type: Spontaneous
  Country: BE (occurrence: BE)
  Receive Date: 20180104
  Receipt Date: 20180618
  Transmission Date: 20180711
  Serious: Yes (Hospitalization, Other)
  Sender: FDA-Public Use
  Company Number: BE-MYLANLABS-2018M1000599

PATIENT
  Age: 43 Year
  Sex: Male

DRUGS (72)
  1. PREDNISONE. [Suspect]
     Active Substance: PREDNISONE
     Indication: DIFFUSE LARGE B-CELL LYMPHOMA RECURRENT
  2. CARBOPLATIN. [Suspect]
     Active Substance: CARBOPLATIN
     Indication: DIFFUSE LARGE B-CELL LYMPHOMA REFRACTORY
  3. CYCLOPHOSPHAMIDE. [Suspect]
     Active Substance: CYCLOPHOSPHAMIDE
     Indication: DIFFUSE LARGE B-CELL LYMPHOMA
     Dosage: UNK
     Route: 065
  4. COPANLISIB. [Suspect]
     Active Substance: COPANLISIB
     Indication: DIFFUSE LARGE B-CELL LYMPHOMA
  5. CELLTOP [Suspect]
     Active Substance: ETOPOSIDE
     Indication: STEM CELL TRANSPLANT
  6. ETOPOSIDE. [Suspect]
     Active Substance: ETOPOSIDE
     Indication: DIFFUSE LARGE B-CELL LYMPHOMA
     Dosage: UNK
     Route: 065
  7. GEMCITABINE [Suspect]
     Active Substance: GEMCITABINE\GEMCITABINE HYDROCHLORIDE
     Indication: DIFFUSE LARGE B-CELL LYMPHOMA
     Dosage: UNK
     Route: 065
  8. DEXAMETHASONE. [Suspect]
     Active Substance: DEXAMETHASONE
     Indication: DIFFUSE LARGE B-CELL LYMPHOMA
     Dosage: UNK
  9. DOXORUBICIN [Suspect]
     Active Substance: DOXORUBICIN
     Indication: DIFFUSE LARGE B-CELL LYMPHOMA
     Dosage: UNK
     Route: 065
  10. DOXORUBICIN [Suspect]
     Active Substance: DOXORUBICIN
     Indication: DIFFUSE LARGE B-CELL LYMPHOMA RECURRENT
     Dosage: UNK, DIFFUSE LARGE B-CELL LYMPHOMA RECURRENT
     Route: 065
  11. BLINATUMOMAB [Suspect]
     Active Substance: BLINATUMOMAB
     Indication: DIFFUSE LARGE B-CELL LYMPHOMA RECURRENT
     Dosage: 28 ?G, UNK (TREATMENT CONTINUED FOR A TOTAL OF 56 DAYS)
     Route: 065
     Dates: start: 20170105, end: 20170111
  12. VINCRISTINE [Suspect]
     Active Substance: VINCRISTINE
     Indication: DIFFUSE LARGE B-CELL LYMPHOMA
     Dosage: UNK
     Route: 065
  13. VINCRISTINE [Suspect]
     Active Substance: VINCRISTINE
     Indication: DIFFUSE LARGE B-CELL LYMPHOMA REFRACTORY
  14. PREDNISONE. [Suspect]
     Active Substance: PREDNISONE
     Indication: DIFFUSE LARGE B-CELL LYMPHOMA REFRACTORY
  15. CARBOPLATIN. [Suspect]
     Active Substance: CARBOPLATIN
     Indication: DIFFUSE LARGE B-CELL LYMPHOMA
     Dosage: UNK
     Route: 065
  16. CARBOPLATIN. [Suspect]
     Active Substance: CARBOPLATIN
     Indication: MALIGNANT NEOPLASM PROGRESSION
  17. GEMCITABINE [Suspect]
     Active Substance: GEMCITABINE\GEMCITABINE HYDROCHLORIDE
     Indication: DIFFUSE LARGE B-CELL LYMPHOMA RECURRENT
  18. CYTARABINE. [Suspect]
     Active Substance: CYTARABINE
     Indication: BONE MARROW CONDITIONING REGIMEN
  19. OXALIPLATIN. [Suspect]
     Active Substance: OXALIPLATIN
     Indication: DIFFUSE LARGE B-CELL LYMPHOMA
     Dosage: UNK
     Route: 065
  20. OXALIPLATIN. [Suspect]
     Active Substance: OXALIPLATIN
     Indication: DIFFUSE LARGE B-CELL LYMPHOMA RECURRENT
  21. VINCRISTINE [Suspect]
     Active Substance: VINCRISTINE
     Indication: DIFFUSE LARGE B-CELL LYMPHOMA RECURRENT
     Dosage: UNK (8 CYCLES (R-CHOP REGIMEN)
     Route: 065
  22. CARMUSTINE [Suspect]
     Active Substance: CARMUSTINE
     Indication: BONE MARROW CONDITIONING REGIMEN
  23. CELLTOP [Suspect]
     Active Substance: ETOPOSIDE
     Indication: MALIGNANT NEOPLASM PROGRESSION
  24. HOLOXAN [Suspect]
     Active Substance: IFOSFAMIDE
     Indication: DIFFUSE LARGE B-CELL LYMPHOMA REFRACTORY
     Dosage: UNK (ICE-REGIMEN)
  25. HOLOXAN [Suspect]
     Active Substance: IFOSFAMIDE
     Indication: MALIGNANT NEOPLASM PROGRESSION
  26. LINEZOLID. [Concomitant]
     Active Substance: LINEZOLID
     Indication: STAPHYLOCOCCAL INFECTION
  27. PREDNISONE. [Suspect]
     Active Substance: PREDNISONE
     Indication: DIFFUSE LARGE B-CELL LYMPHOMA
     Dosage: UNK, 8 CYCLES (RCHOP REGIMEN)
     Route: 065
  28. IFOSFAMIDE. [Suspect]
     Active Substance: IFOSFAMIDE
     Indication: MALIGNANT NEOPLASM PROGRESSION
  29. DEXAMETHASONE. [Suspect]
     Active Substance: DEXAMETHASONE
     Indication: PROPHYLAXIS
  30. DOXORUBICIN [Suspect]
     Active Substance: DOXORUBICIN
     Indication: DIFFUSE LARGE B-CELL LYMPHOMA REFRACTORY
  31. VANCOMYCIN [Suspect]
     Active Substance: VANCOMYCIN
     Indication: STAPHYLOCOCCAL INFECTION
     Dosage: UNK
     Route: 065
  32. BENDAMUSTINE HYDROCHLORIDE. [Suspect]
     Active Substance: BENDAMUSTINE HYDROCHLORIDE
     Indication: DIFFUSE LARGE B-CELL LYMPHOMA RECURRENT
  33. ENDOXAN                            /00021101/ [Suspect]
     Active Substance: CYCLOPHOSPHAMIDE
     Indication: DIFFUSE LARGE B-CELL LYMPHOMA STAGE III
     Dosage: UNK, 8 CYCLES (RCHOP)
  34. CELLTOP [Suspect]
     Active Substance: ETOPOSIDE
     Indication: BONE MARROW CONDITIONING REGIMEN
     Dosage: UNK (BEAM REGIMEN)
  35. HOLOXAN [Suspect]
     Active Substance: IFOSFAMIDE
     Indication: DIFFUSE LARGE B-CELL LYMPHOMA REFRACTORY
  36. CARBOPLATIN. [Suspect]
     Active Substance: CARBOPLATIN
     Indication: DIFFUSE LARGE B-CELL LYMPHOMA REFRACTORY
  37. MELPHALAN. [Suspect]
     Active Substance: MELPHALAN
     Indication: DIFFUSE LARGE B-CELL LYMPHOMA
  38. VANCOMYCIN [Suspect]
     Active Substance: VANCOMYCIN
     Indication: DEVICE RELATED INFECTION
  39. RITUXIMAB. [Suspect]
     Active Substance: RITUXIMAB
     Indication: DIFFUSE LARGE B-CELL LYMPHOMA
     Dosage: UNK
     Route: 065
  40. COPANLISIB. [Suspect]
     Active Substance: COPANLISIB
     Indication: DIFFUSE LARGE B-CELL LYMPHOMA RECURRENT
  41. ENDOXAN                            /00021101/ [Suspect]
     Active Substance: CYCLOPHOSPHAMIDE
     Indication: DIFFUSE LARGE B-CELL LYMPHOMA REFRACTORY
  42. ETOPOSIDE. [Suspect]
     Active Substance: ETOPOSIDE
     Indication: DIFFUSE LARGE B-CELL LYMPHOMA REFRACTORY
  43. CYTARABINE. [Suspect]
     Active Substance: CYTARABINE
     Indication: DIFFUSE LARGE B-CELL LYMPHOMA
  44. DOXORUBICIN [Suspect]
     Active Substance: DOXORUBICIN
     Indication: DIFFUSE LARGE B-CELL LYMPHOMA STAGE III
  45. MELPHALAN. [Suspect]
     Active Substance: MELPHALAN
     Indication: BONE MARROW CONDITIONING REGIMEN
  46. COPANLISIB. [Suspect]
     Active Substance: COPANLISIB
     Indication: DIFFUSE LARGE B-CELL LYMPHOMA RECURRENT
     Route: 065
  47. ENDOXAN                            /00021101/ [Suspect]
     Active Substance: CYCLOPHOSPHAMIDE
     Indication: DIFFUSE LARGE B-CELL LYMPHOMA RECURRENT
  48. HOLOXAN [Suspect]
     Active Substance: IFOSFAMIDE
     Indication: MALIGNANT NEOPLASM PROGRESSION
  49. PREDNISONE. [Suspect]
     Active Substance: PREDNISONE
     Indication: DIFFUSE LARGE B-CELL LYMPHOMA
     Dosage: UNK
     Route: 065
  50. ETOPOSIDE. [Suspect]
     Active Substance: ETOPOSIDE
     Indication: STEM CELL TRANSPLANT
  51. ETOPOSIDE. [Suspect]
     Active Substance: ETOPOSIDE
     Indication: MALIGNANT NEOPLASM PROGRESSION
  52. DEXAMETHASONE. [Suspect]
     Active Substance: DEXAMETHASONE
     Indication: PREMEDICATION
     Dosage: 20 MG, QD
     Route: 065
  53. CYTARABINE. [Suspect]
     Active Substance: CYTARABINE
     Indication: STEM CELL TRANSPLANT
     Dosage: UNK
     Route: 065
  54. MELPHALAN. [Suspect]
     Active Substance: MELPHALAN
     Indication: STEM CELL TRANSPLANT
     Dosage: UNK
     Route: 065
  55. RITUXIMAB. [Suspect]
     Active Substance: RITUXIMAB
     Indication: DIFFUSE LARGE B-CELL LYMPHOMA RECURRENT
     Dosage: R-CHOP REGIMEN (SECOND TIME RELAPSE)
     Route: 065
  56. RITUXIMAB. [Suspect]
     Active Substance: RITUXIMAB
     Indication: DIFFUSE LARGE B-CELL LYMPHOMA REFRACTORY
  57. CYCLOPHOSPHAMIDE. [Suspect]
     Active Substance: CYCLOPHOSPHAMIDE
     Indication: DIFFUSE LARGE B-CELL LYMPHOMA RECURRENT
  58. BENDAMUSTINE HYDROCHLORIDE. [Suspect]
     Active Substance: BENDAMUSTINE HYDROCHLORIDE
     Indication: DIFFUSE LARGE B-CELL LYMPHOMA
     Dosage: UNK
     Route: 065
  59. BLINATUMOMAB [Suspect]
     Active Substance: BLINATUMOMAB
     Indication: DIFFUSE LARGE B-CELL LYMPHOMA
     Dosage: 9 ?G, QD (DAILY)
     Route: 065
     Dates: start: 20161229, end: 20170104
  60. CARMUSTINE [Suspect]
     Active Substance: CARMUSTINE
     Indication: DIFFUSE LARGE B-CELL LYMPHOMA
  61. PREDNISONE. [Suspect]
     Active Substance: PREDNISONE
     Indication: DIFFUSE LARGE B-CELL LYMPHOMA STAGE III
  62. IFOSFAMIDE. [Suspect]
     Active Substance: IFOSFAMIDE
     Indication: DIFFUSE LARGE B-CELL LYMPHOMA
     Dosage: UNK
     Route: 065
  63. RITUXIMAB. [Suspect]
     Active Substance: RITUXIMAB
     Indication: DIFFUSE LARGE B-CELL LYMPHOMA STAGE III
  64. RITUXIMAB. [Suspect]
     Active Substance: RITUXIMAB
     Indication: B-CELL LYMPHOMA
  65. CYCLOPHOSPHAMIDE. [Suspect]
     Active Substance: CYCLOPHOSPHAMIDE
     Indication: DIFFUSE LARGE B-CELL LYMPHOMA REFRACTORY
  66. BLINATUMOMAB [Suspect]
     Active Substance: BLINATUMOMAB
     Indication: DIFFUSE LARGE B-CELL LYMPHOMA REFRACTORY
     Dosage: 112 ?G, CONTINUOUS INFUSION
     Route: 065
     Dates: start: 20170104, end: 20170308
  67. BLINATUMOMAB [Suspect]
     Active Substance: BLINATUMOMAB
     Dosage: UNK
     Route: 041
  68. VINCRISTINE [Suspect]
     Active Substance: VINCRISTINE
     Indication: DIFFUSE LARGE B-CELL LYMPHOMA STAGE III
  69. CARMUSTINE [Suspect]
     Active Substance: CARMUSTINE
     Indication: STEM CELL TRANSPLANT
     Dosage: UNK (BEAM REGIMEN)
     Route: 065
  70. CELLTOP [Suspect]
     Active Substance: ETOPOSIDE
     Indication: DIFFUSE LARGE B-CELL LYMPHOMA REFRACTORY
  71. LINEZOLID. [Concomitant]
     Active Substance: LINEZOLID
     Indication: DEVICE RELATED INFECTION
  72. LINEZOLID. [Concomitant]
     Active Substance: LINEZOLID
     Indication: DEVICE RELATED INFECTION

REACTIONS (23)
  - Glomerular filtration rate decreased [Unknown]
  - Toxicity to various agents [Recovered/Resolved]
  - Off label use [Unknown]
  - Neutropenic sepsis [Unknown]
  - End stage renal disease [Unknown]
  - Metastases to lung [Recovered/Resolved]
  - Malignant neoplasm progression [Recovered/Resolved]
  - Metastases to bone marrow [Recovered/Resolved]
  - Cytokine release syndrome [Recovered/Resolved]
  - Drug ineffective [Recovered/Resolved]
  - Staphylococcal infection [Unknown]
  - Tubulointerstitial nephritis [Unknown]
  - Diffuse large B-cell lymphoma [Recovered/Resolved]
  - Nervous system disorder [Recovered/Resolved]
  - Drug ineffective for unapproved indication [Unknown]
  - Device related infection [Unknown]
  - Metastases to muscle [Recovered/Resolved]
  - Cytopenia [Recovered/Resolved]
  - Metastases to retroperitoneum [Recovered/Resolved]
  - Renal impairment [Unknown]
  - Metastases to spleen [Recovered/Resolved]
  - Metastases to liver [Recovered/Resolved]
  - Pyrexia [Unknown]

NARRATIVE: CASE EVENT DATE: 2017
